FAERS Safety Report 25585523 (Version 2)
Quarter: 2025Q4

REPORT INFORMATION
  Report Type: Spontaneous
  Country: GB (occurrence: GB)
  Receive Date: 20250721
  Receipt Date: 20251009
  Transmission Date: 20260118
  Serious: Yes (Hospitalization)
  Sender: MYLAN
  Company Number: GB-MYLANLABS-2025M1060399

PATIENT
  Sex: Male

DRUGS (3)
  1. CLOZARIL [Suspect]
     Active Substance: CLOZAPINE
     Indication: Schizophrenia
     Dosage: UNK (START DATE: 2021/2022)
  2. CLOZARIL [Suspect]
     Active Substance: CLOZAPINE
     Dosage: UNK
  3. CLOZARIL [Suspect]
     Active Substance: CLOZAPINE
     Dosage: 850 MILLIGRAM, QD (850 MG PER DAY FOR 3 YEARS AFTERWARDS...)

REACTIONS (2)
  - Hospitalisation [Unknown]
  - Therapy interrupted [Unknown]
